FAERS Safety Report 23651018 (Version 1)
Quarter: 2024Q1

REPORT INFORMATION
  Report Type: Spontaneous
  Country: US (occurrence: US)
  Receive Date: 20240320
  Receipt Date: 20240320
  Transmission Date: 20240410
  Serious: No
  Sender: FDA-Public Use
  Company Number: US-STRIDES ARCOLAB LIMITED-2023SP008554

PATIENT
  Sex: Male

DRUGS (3)
  1. TENOFOVIR DISOPROXIL FUMARATE [Suspect]
     Active Substance: TENOFOVIR DISOPROXIL FUMARATE
     Indication: Hepatitis D
     Dosage: 300 MILLIGRAM (PER DAY)
     Route: 065
  2. PEGYLATED INTERFERON ALPHA NOS [Suspect]
     Active Substance: PEGINTERFERON ALFA-2A OR PEGINTERFERON ALFA-2B
     Indication: Hepatitis D
     Dosage: 180 MICROGRAM PER WEEK
     Route: 065
  3. PRAZIQUANTEL [Concomitant]
     Active Substance: PRAZIQUANTEL
     Indication: Schistosomiasis
     Dosage: UNK
     Route: 065

REACTIONS (3)
  - Headache [Unknown]
  - Fatigue [Unknown]
  - Off label use [Unknown]
